FAERS Safety Report 22252632 (Version 1)
Quarter: 2023Q2

REPORT INFORMATION
  Report Type: Spontaneous
  Country: CA (occurrence: CA)
  Receive Date: 20230426
  Receipt Date: 20230426
  Transmission Date: 20230721
  Serious: Yes (Other)
  Sender: FDA-Public Use
  Company Number: CA-AUROBINDO-AUR-APL-2023-032237

PATIENT
  Age: 42 Year
  Sex: Female

DRUGS (16)
  1. LAMOTRIGINE [Suspect]
     Active Substance: LAMOTRIGINE
     Indication: Schizophrenia
     Dosage: UNK
     Route: 065
  2. LAMOTRIGINE [Suspect]
     Active Substance: LAMOTRIGINE
     Indication: Epilepsy
     Dosage: UNK
     Route: 065
  3. CLOZAPINE [Suspect]
     Active Substance: CLOZAPINE
     Indication: Schizophrenia
     Dosage: 50 MILLIGRAM
     Route: 065
  4. CLOZAPINE [Suspect]
     Active Substance: CLOZAPINE
     Dosage: 150 MILLIGRAM
     Route: 065
  5. CLOZAPINE [Suspect]
     Active Substance: CLOZAPINE
     Dosage: 225 MILLIGRAM
     Route: 065
  6. CLOZAPINE [Suspect]
     Active Substance: CLOZAPINE
     Dosage: 150 MILLIGRAM
     Route: 065
  7. CLOZAPINE [Suspect]
     Active Substance: CLOZAPINE
     Dosage: 150 MILLIGRAM
     Route: 065
  8. CLOZAPINE [Suspect]
     Active Substance: CLOZAPINE
     Dosage: 300 MILLIGRAM
     Route: 065
  9. CARBAMAZEPINE [Suspect]
     Active Substance: CARBAMAZEPINE
     Indication: Schizophrenia
     Dosage: UNK
     Route: 065
  10. CARBAMAZEPINE [Suspect]
     Active Substance: CARBAMAZEPINE
     Indication: Epilepsy
     Dosage: UNK
     Route: 065
  11. VALPROATE SODIUM [Suspect]
     Active Substance: VALPROATE SODIUM
     Indication: Schizophrenia
     Dosage: UNK
     Route: 065
  12. VALPROATE SODIUM [Suspect]
     Active Substance: VALPROATE SODIUM
     Indication: Epilepsy
  13. LITHIUM [Concomitant]
     Active Substance: LITHIUM
     Indication: Schizophrenia
     Dosage: UNK
     Route: 065
  14. LITHIUM [Concomitant]
     Active Substance: LITHIUM
     Indication: Epilepsy
     Dosage: UNK
     Route: 065
  15. PERICIAZINE [Concomitant]
     Active Substance: PERICIAZINE
     Indication: Schizophrenia
     Dosage: UNK
     Route: 065
  16. PERICIAZINE [Concomitant]
     Active Substance: PERICIAZINE
     Indication: Epilepsy

REACTIONS (4)
  - Leukopenia [Recovered/Resolved]
  - Neutropenia [Recovered/Resolved]
  - Pancytopenia [Recovered/Resolved]
  - Thrombocytopenia [Recovered/Resolved]
